FAERS Safety Report 9596631 (Version 2)
Quarter: 2014Q1

REPORT INFORMATION
  Report Type: Spontaneous
  Country: TN (occurrence: TN)
  Receive Date: 20131004
  Receipt Date: 20140326
  Transmission Date: 20141002
  Serious: Yes (Hospitalization, Other)
  Sender: FDA-Public Use
  Company Number: PHHY2013TN110572

PATIENT
  Age: 55 Year
  Sex: Female

DRUGS (1)
  1. TEGRETOL [Suspect]
     Indication: TRIGEMINAL NEURALGIA
     Dosage: 400 MG, BID
     Route: 048
     Dates: start: 20130910

REACTIONS (13)
  - Cell death [Not Recovered/Not Resolved]
  - Pericarditis [Not Recovered/Not Resolved]
  - Anaphylactic reaction [Unknown]
  - Angioedema [Not Recovered/Not Resolved]
  - Generalised oedema [Not Recovered/Not Resolved]
  - Dyspnoea [Unknown]
  - Abdominal distension [Unknown]
  - Bronchospasm [Unknown]
  - Wheezing [Unknown]
  - Urticaria [Unknown]
  - Rash [Unknown]
  - Laryngospasm [Unknown]
  - Skin discolouration [Unknown]
